FAERS Safety Report 19612343 (Version 1)
Quarter: 2021Q3

REPORT INFORMATION
  Report Type: Spontaneous
  Country: CN (occurrence: CN)
  Receive Date: 20210726
  Receipt Date: 20210726
  Transmission Date: 20211014
  Serious: Yes (Hospitalization)
  Sender: FDA-Public Use
  Company Number: CN-BAXTER-2021BAX021903

PATIENT
  Age: 71 Year
  Sex: Male
  Weight: 59 kg

DRUGS (6)
  1. ENDOXAN [Suspect]
     Active Substance: CYCLOPHOSPHAMIDE
     Indication: NON-HODGKIN^S LYMPHOMA
     Dosage: CYCLOPHOSPHAMIDE + NORMAL (NS) 30 ML
     Route: 042
     Dates: start: 20210628, end: 20210628
  2. 5% GLUCOSE  INJECTION [Suspect]
     Active Substance: DEXTROSE
     Indication: MEDICATION DILUTION
     Dosage: 5% GS + PIRARUBICIN HYDROCHLORIDE 80 MG
     Route: 041
     Dates: start: 20210628, end: 20210628
  3. VINCRISTINE SULFATE. [Suspect]
     Active Substance: VINCRISTINE SULFATE
     Indication: NON-HODGKIN^S LYMPHOMA
     Dosage: VINCRISTINE SULFATE + NS 30 ML
     Route: 042
     Dates: start: 20210628, end: 20210628
  4. 0.9% SODIUM CHLORIDE INJECTION [Suspect]
     Active Substance: SODIUM CHLORIDE
     Indication: MEDICATION DILUTION
     Dosage: NORMAL SALINE (NS) + CYCLOPHOSPHAMIDE 1.2 G
     Route: 042
     Dates: start: 20210628, end: 20210628
  5. PIRARUBICIN HYDROCHLORIDE [Suspect]
     Active Substance: PIRARUBICIN HYDROCHLORIDE
     Indication: NON-HODGKIN^S LYMPHOMA
     Dosage: PIRARUBICIN HYDROCHLORIDE + 5% GLUCOSE 100 ML
     Route: 041
     Dates: start: 20210628, end: 20210628
  6. 0.9% SODIUM CHLORIDE INJECTION [Suspect]
     Active Substance: SODIUM CHLORIDE
     Dosage: NORMAL SALINE (NS) + VINCRISTINE SULFATE 2 MG
     Route: 042
     Dates: start: 20210628, end: 20210628

REACTIONS (1)
  - White blood cell count decreased [Recovering/Resolving]

NARRATIVE: CASE EVENT DATE: 20210705
